FAERS Safety Report 5062060-7 (Version None)
Quarter: 2006Q3

REPORT INFORMATION
  Report Type: 
  Country: None (occurrence: None)
  Receive Date: 20060726
  Receipt Date: 20060616
  Transmission Date: 20061208
  Serious: Yes (Other)
  Sender: FDA-Public Use
  Company Number: PHRM2006FR01852

PATIENT
  Age: 70 Year
  Sex: Female
  Weight: 56 kg

DRUGS (2)
  1. ZOMETA [Suspect]
     Indication: MULTIPLE MYELOMA
     Dosage: 4 MG, QMO
     Route: 042
     Dates: start: 20040328, end: 20051004
  2. CALCIUM WITH VITAMIN D [Concomitant]

REACTIONS (11)
  - ACTINOMYCOSIS [None]
  - ASTHENIA [None]
  - CARCINOEMBRYONIC ANTIGEN INCREASED [None]
  - DIARRHOEA [None]
  - HEPATIC STEATOSIS [None]
  - INJURY [None]
  - LYMPHOPENIA [None]
  - MALIGNANT NEOPLASM PROGRESSION [None]
  - NAUSEA [None]
  - OSTEITIS [None]
  - OSTEONECROSIS [None]
